FAERS Safety Report 6191401-2 (Version None)
Quarter: 2009Q2

REPORT INFORMATION
  Report Type: 
  Country: None (occurrence: None)
  Receive Date: 20090515
  Receipt Date: 20090511
  Transmission Date: 20091009
  Serious: Yes (Hospitalization)
  Sender: FDA-Public Use
  Company Number: MX-SP-2009-02036

PATIENT
  Age: 74 Year
  Sex: Male

DRUGS (2)
  1. BCG  THERAPEUTICS [Suspect]
     Indication: BLADDER CANCER
     Dosage: NOT REPORTED
     Route: 043
  2. DILTIAZEM [Concomitant]
     Route: 048

REACTIONS (10)
  - ARTHRITIS REACTIVE [None]
  - BACK PAIN [None]
  - CONJUNCTIVAL HYPERAEMIA [None]
  - DYSURIA [None]
  - PAIN [None]
  - PHOTOPHOBIA [None]
  - POLLAKIURIA [None]
  - PYREXIA [None]
  - REITER'S SYNDROME [None]
  - VISION BLURRED [None]
